FAERS Safety Report 7626445-4 (Version None)
Quarter: 2011Q3

REPORT INFORMATION
  Report Type: 
  Country: None (occurrence: None)
  Receive Date: 20110721
  Receipt Date: 20110718
  Transmission Date: 20111222
  Serious: Yes (Other)
  Sender: FDA-Public Use
  Company Number: NL-PFIZER INC-2011162847

PATIENT
  Age: 64 Year
  Sex: Female

DRUGS (1)
  1. REVATIO [Suspect]
     Indication: PULMONARY HYPERTENSION
     Dosage: 20 MG, 3X/DAY
     Route: 048
     Dates: start: 20110221, end: 20110718

REACTIONS (4)
  - CHEST PAIN [None]
  - HEADACHE [None]
  - EYE PAIN [None]
  - MYALGIA [None]
